FAERS Safety Report 5610433-3 (Version None)
Quarter: 2008Q1

REPORT INFORMATION
  Report Type: 
  Country: None (occurrence: None)
  Receive Date: 20080128
  Receipt Date: 20080116
  Transmission Date: 20080703
  Serious: Yes (Hospitalization)
  Sender: FDA-Public Use
  Company Number: OPER20080006

PATIENT
  Sex: Female

DRUGS (1)
  1. OPANA ER [Suspect]

REACTIONS (1)
  - RESPIRATORY FAILURE [None]
